FAERS Safety Report 8829774 (Version 1)
Quarter: 2012Q4

REPORT INFORMATION
  Report Type: 
  Country: US (occurrence: US)
  Receive Date: 20121008
  Receipt Date: 20121008
  Transmission Date: 20130627
  Serious: Yes (Hospitalization)
  Sender: FDA-Public Use
  Company Number: US-ASTRAZENECA-2012SE74928

PATIENT
  Age: 79 Year
  Sex: Male

DRUGS (1)
  1. MERREM [Suspect]
     Indication: PNEUMONIA
     Route: 042
     Dates: start: 20120812

REACTIONS (3)
  - Liver function test abnormal [Recovering/Resolving]
  - Aplastic anaemia [Unknown]
  - Dyspnoea [Unknown]
